FAERS Safety Report 17911191 (Version 2)
Quarter: 2020Q3

REPORT INFORMATION
  Report Type: Spontaneous
  Country: US (occurrence: US)
  Receive Date: 20200618
  Receipt Date: 20200717
  Transmission Date: 20201103
  Serious: No
  Sender: FDA-Public Use
  Company Number: US-KARYOPHARM-2020KPT000598

PATIENT

DRUGS (1)
  1. XPOVIO [Suspect]
     Active Substance: SELINEXOR
     Indication: PLASMA CELL MYELOMA
     Dosage: 80 MG, 2X/WEEK
     Route: 048
     Dates: start: 20200513, end: 202006

REACTIONS (10)
  - Diarrhoea [Unknown]
  - Fatigue [Unknown]
  - Thrombocytopenia [Unknown]
  - Nausea [Unknown]
  - Balance disorder [Unknown]
  - Decreased appetite [Not Recovered/Not Resolved]
  - Confusional state [Unknown]
  - Weight decreased [Unknown]
  - Pyrexia [Unknown]
  - Memory impairment [Unknown]

NARRATIVE: CASE EVENT DATE: 202005
